FAERS Safety Report 10783200 (Version 4)
Quarter: 2016Q3

REPORT INFORMATION
  Report Type: Report from Study
  Country: TR (occurrence: TR)
  Receive Date: 20150210
  Receipt Date: 20160812
  Transmission Date: 20161109
  Serious: Yes (Hospitalization)
  Sender: FDA-Public Use
  Company Number: PHHO2014TR012782

PATIENT
  Age: 58 Year
  Sex: Female
  Weight: 70 kg

DRUGS (4)
  1. LDK378 [Suspect]
     Active Substance: CERITINIB
     Indication: NON-SMALL CELL LUNG CANCER
     Dosage: 750 MG, UNK
     Route: 048
     Dates: start: 20140801
  2. ENOXAPARIN [Suspect]
     Active Substance: ENOXAPARIN
     Dosage: 0.8 CM3, BID (0.8 CC (2X1))
     Route: 058
     Dates: start: 20140918
  3. ENOXAPARIN [Suspect]
     Active Substance: ENOXAPARIN
     Indication: DEEP VEIN THROMBOSIS
     Dosage: 0.8 CM3, BID (0.8 CC (2X1))
     Route: 058
     Dates: start: 20140827, end: 20140916
  4. LDK378 [Suspect]
     Active Substance: CERITINIB
     Dosage: 600 MG, UNK
     Route: 048

REACTIONS (3)
  - Paraesthesia [Recovered/Resolved with Sequelae]
  - Facial bones fracture [Recovered/Resolved]
  - Epistaxis [Recovered/Resolved]

NARRATIVE: CASE EVENT DATE: 20140916
